FAERS Safety Report 15978033 (Version 1)
Quarter: 2019Q1

REPORT INFORMATION
  Report Type: Spontaneous
  Country: US (occurrence: US)
  Receive Date: 20190218
  Receipt Date: 20190218
  Transmission Date: 20190418
  Serious: Yes (Other)
  Sender: FDA-Public Use
  Company Number: US-SA-2019SA042682

PATIENT
  Sex: Female

DRUGS (6)
  1. TRIAMTERENE HCTZ [Concomitant]
     Active Substance: HYDROCHLOROTHIAZIDE\TRIAMTERENE
  2. GABAPENTIN. [Concomitant]
     Active Substance: GABAPENTIN
  3. KLOR-CON [Concomitant]
     Active Substance: POTASSIUM CHLORIDE
  4. AUBAGIO [Suspect]
     Active Substance: TERIFLUNOMIDE
     Indication: MULTIPLE SCLEROSIS
     Dosage: 14 MG, QD
     Route: 048
     Dates: start: 20181210
  5. AMLODIPINE [Concomitant]
     Active Substance: AMLODIPINE BESYLATE
  6. METOPROLOL. [Concomitant]
     Active Substance: METOPROLOL

REACTIONS (10)
  - Burning sensation [Unknown]
  - Muscle tightness [Unknown]
  - Condition aggravated [Unknown]
  - Multiple sclerosis [Unknown]
  - Fall [Unknown]
  - Supraventricular extrasystoles [Unknown]
  - Pruritus [Unknown]
  - Pain in extremity [Unknown]
  - Hypoaesthesia [Unknown]
  - Diarrhoea [Unknown]
